FAERS Safety Report 23098673 (Version 1)
Quarter: 2023Q4

REPORT INFORMATION
  Report Type: Spontaneous
  Country: US (occurrence: US)
  Receive Date: 20231023
  Receipt Date: 20231023
  Transmission Date: 20240110
  Serious: Yes (Hospitalization, Other)
  Sender: FDA-Public Use
  Company Number: US-AUROBINDO-AUR-APL-2023-064401

PATIENT
  Sex: Female

DRUGS (3)
  1. DEXAMETHASONE [Suspect]
     Active Substance: DEXAMETHASONE
     Indication: Maternal therapy to enhance foetal lung maturity
     Dosage: UNK
     Route: 064
  2. MAGNESIUM SULFATE [Concomitant]
     Active Substance: MAGNESIUM SULFATE\MAGNESIUM SULFATE HEPTAHYDRATE
     Indication: Pre-eclampsia
     Dosage: UNK
     Route: 064
  3. NIFEDIPINE [Concomitant]
     Active Substance: NIFEDIPINE
     Indication: Pre-eclampsia
     Dosage: UNK
     Route: 064

REACTIONS (5)
  - Gastric perforation [Unknown]
  - Intestinal perforation [Unknown]
  - Abdominal distension [Unknown]
  - Pneumoperitoneum [Unknown]
  - Foetal exposure during pregnancy [Unknown]
